FAERS Safety Report 7091915-7 (Version None)
Quarter: 2010Q4

REPORT INFORMATION
  Report Type: 
  Country: None (occurrence: None)
  Receive Date: 20101109
  Receipt Date: 20101102
  Transmission Date: 20110411
  Serious: Yes (Other)
  Sender: FDA-Public Use
  Company Number: US-SANOFI-AVENTIS-2010SA067018

PATIENT
  Age: 70 Year
  Sex: Female

DRUGS (1)
  1. NASACORT AQ [Suspect]
     Dosage: ^55MG/ACT^, 2 QUIRTS IN EACH NOSTRIL QD PRN
     Route: 045

REACTIONS (1)
  - MACULAR DEGENERATION [None]
